FAERS Safety Report 13562244 (Version 1)
Quarter: 2017Q2

REPORT INFORMATION
  Report Type: Report from Study
  Country: NL (occurrence: NL)
  Receive Date: 20170519
  Receipt Date: 20170519
  Transmission Date: 20170830
  Serious: Yes (Other)
  Sender: FDA-Public Use
  Company Number: NL-AMGEN-NLDSL2017073353

PATIENT
  Sex: Male

DRUGS (1)
  1. XGEVA [Suspect]
     Active Substance: DENOSUMAB
     Indication: PROPHYLAXIS
     Dosage: 120 MG,(1.70 ML) Q4WK
     Route: 058

REACTIONS (5)
  - Lumbar vertebral fracture [Unknown]
  - Prostate cancer [Unknown]
  - Pain in extremity [Unknown]
  - Pain [Unknown]
  - Flank pain [Unknown]
